FAERS Safety Report 7588390-2 (Version None)
Quarter: 2011Q2

REPORT INFORMATION
  Report Type: 
  Country: None (occurrence: None)
  Receive Date: 20110627
  Receipt Date: 20110613
  Transmission Date: 20111010
  Serious: Yes (Other)
  Sender: FDA-Public Use
  Company Number: 2011AP001146

PATIENT
  Age: 13 Year
  Sex: Male

DRUGS (4)
  1. VECURONIUM BROMIDE [Suspect]
     Indication: GENERAL ANAESTHESIA
  2. SEVOFLURANE [Suspect]
     Indication: GENERAL ANAESTHESIA
     Dosage: ;INH
     Route: 055
  3. DESFLURANE [Suspect]
     Indication: GENERAL ANAESTHESIA
     Dosage: ;INH
     Route: 055
  4. ONDANSETRON HYDROCHLORIDE [Suspect]
     Indication: VOMITING

REACTIONS (2)
  - EXTRASYSTOLES [None]
  - VENTRICULAR TACHYCARDIA [None]
